FAERS Safety Report 10657566 (Version 1)
Quarter: 2014Q4

REPORT INFORMATION
  Report Type: Spontaneous
  Country: US (occurrence: US)
  Receive Date: 20141217
  Receipt Date: 20141217
  Transmission Date: 20150529
  Serious: Yes (Other)
  Sender: FDA-Public Use
  Company Number: US-GLAXOSMITHKLINE-A1050498A

PATIENT

DRUGS (1)
  1. VOTRIENT [Suspect]
     Active Substance: PAZOPANIB HYDROCHLORIDE
     Indication: RENAL CELL CARCINOMA
     Dosage: 400 MG REDUCED TO 200 MG
     Dates: start: 20120710, end: 20130515

REACTIONS (3)
  - Transient ischaemic attack [Unknown]
  - Proteinuria [Unknown]
  - Hypertension [Recovering/Resolving]
